FAERS Safety Report 5208492-5 (Version None)
Quarter: 2006Q4

REPORT INFORMATION
  Report Type: 
  Country: None (occurrence: None)
  Receive Date: 20061027
  Receipt Date: 20060228
  Transmission Date: 20070319
  Serious: Yes (Hospitalization, Other)
  Sender: FDA-Public Use
  Company Number: HQWYE283523MAR05

PATIENT
  Age: 63 Year
  Sex: Female

DRUGS (5)
  1. PREMARIN [Suspect]
     Indication: OESTROGEN REPLACEMENT THERAPY
     Dosage: 1.25 MG, ORAL
     Route: 048
     Dates: start: 19770101, end: 19860101
  2. CYCRIN [Suspect]
  3. ESTRACE [Suspect]
     Indication: OESTROGEN REPLACEMENT THERAPY
     Dates: start: 19900101, end: 19970101
  4. OGEN [Suspect]
     Indication: OESTROGEN REPLACEMENT THERAPY
     Dosage: 1.25 MG, ORAL
     Route: 048
     Dates: start: 19760101, end: 19770101
  5. OGEN [Suspect]
     Indication: OESTROGEN REPLACEMENT THERAPY
     Dosage: 1.25 MG, ORAL
     Route: 048
     Dates: start: 19880101, end: 19900101

REACTIONS (1)
  - BREAST CANCER [None]
